FAERS Safety Report 23155428 (Version 2)
Quarter: 2024Q2

REPORT INFORMATION
  Report Type: Spontaneous
  Country: US (occurrence: US)
  Receive Date: 20231107
  Receipt Date: 20240516
  Transmission Date: 20240715
  Serious: No
  Sender: FDA-Public Use
  Company Number: US-SA-SAC20231030002075

PATIENT
  Age: 57 Year
  Sex: Male

DRUGS (2)
  1. DUPIXENT [Suspect]
     Active Substance: DUPILUMAB
     Indication: Dermatitis atopic
     Dosage: 300 MG, QOW
     Route: 058
     Dates: start: 20210122
  2. DEPO-MEDROL [Concomitant]
     Active Substance: METHYLPREDNISOLONE ACETATE
     Dosage: UNK

REACTIONS (3)
  - Scab [Not Recovered/Not Resolved]
  - Rash [Not Recovered/Not Resolved]
  - Eye irritation [Not Recovered/Not Resolved]
